FAERS Safety Report 19131707 (Version 1)
Quarter: 2021Q2

REPORT INFORMATION
  Report Type: Spontaneous
  Country: US (occurrence: US)
  Receive Date: 20210413
  Receipt Date: 20210413
  Transmission Date: 20210717
  Serious: Yes (Other)
  Sender: FDA-Public Use
  Company Number: US-BAUSCH-BL-2021-011174

PATIENT
  Age: 15 Year
  Sex: Male

DRUGS (19)
  1. DEXAMETHASONE. [Suspect]
     Active Substance: DEXAMETHASONE
     Dosage: IN WEEK 17
     Route: 065
  2. ETOPOSIDE. [Suspect]
     Active Substance: ETOPOSIDE
     Dosage: 50% DOSE DURING WEEK 2, HELD ON WEEK 3
     Route: 065
  3. ETOPOSIDE. [Suspect]
     Active Substance: ETOPOSIDE
     Indication: HAEMOPHAGOCYTIC LYMPHOHISTIOCYTOSIS
     Dosage: AT WEEK 1
     Route: 065
  4. EMAPALUMAB [Suspect]
     Active Substance: EMAPALUMAB
     Indication: NERVOUS SYSTEM DISORDER PROPHYLAXIS
     Dosage: DOSE INCREASED AT WEEK 10 (ACCOUNTING FOR VIAL SIZE); HELD DURING WEEK 12
     Route: 065
  5. DEXAMETHASONE. [Suspect]
     Active Substance: DEXAMETHASONE
     Indication: NERVOUS SYSTEM DISORDER
     Dosage: IN WEEK 5 AND 6
     Route: 065
  6. EMAPALUMAB [Suspect]
     Active Substance: EMAPALUMAB
     Indication: HAEMOPHAGOCYTIC LYMPHOHISTIOCYTOSIS
     Dosage: ACCOUNTING FOR VIAL SIZE, HELD WEEK 7
     Route: 065
  7. POSACONAZOLE [Concomitant]
     Active Substance: POSACONAZOLE
     Indication: PROPHYLAXIS
     Route: 065
  8. RITUXIMAB. [Concomitant]
     Active Substance: RITUXIMAB
     Indication: EPSTEIN-BARR VIRUS INFECTION
     Dosage: AT WEEK 1, 2, 3 AND 4
     Route: 042
  9. DEXAMETHASONE. [Suspect]
     Active Substance: DEXAMETHASONE
     Indication: HAEMOPHAGOCYTIC LYMPHOHISTIOCYTOSIS
     Dosage: FROM WEEK 1?4
     Route: 065
  10. DEXAMETHASONE. [Suspect]
     Active Substance: DEXAMETHASONE
     Dosage: RESTARTED IN WEEK 15 AND 16
     Route: 065
  11. RITUXIMAB. [Concomitant]
     Active Substance: RITUXIMAB
     Indication: NERVOUS SYSTEM DISORDER
     Dosage: AT WEEK 15
     Route: 037
  12. METHOTREXATE. [Concomitant]
     Active Substance: METHOTREXATE
     Indication: NERVOUS SYSTEM DISORDER PROPHYLAXIS
     Dosage: AT WEEK 2,3,4,5
     Route: 037
  13. PENTAMIDINE [Concomitant]
     Active Substance: PENTAMIDINE
     Indication: PROPHYLAXIS
     Route: 065
  14. DEXAMETHASONE. [Suspect]
     Active Substance: DEXAMETHASONE
     Dosage: IN WEEK 7 AND 8
     Route: 065
  15. EMAPALUMAB [Suspect]
     Active Substance: EMAPALUMAB
     Dosage: CONTINUED ON WEEK 13 TILL 17
     Route: 065
  16. METHOTREXATE. [Concomitant]
     Active Substance: METHOTREXATE
     Indication: NERVOUS SYSTEM DISORDER
     Dosage: RESTARTED AT WEEK 10 AND CONTINUED ON WEEK 11, 13, 14, 16 AND 17
     Route: 037
  17. CYCLOPHOSPHAMIDE. [Concomitant]
     Active Substance: CYCLOPHOSPHAMIDE
     Indication: NERVOUS SYSTEM DISORDER
     Dosage: AT WEEK 15 AND 16
  18. DEXAMETHASONE. [Suspect]
     Active Substance: DEXAMETHASONE
     Dosage: BEYOND WEEK 8 (WEEK 9 TO 14)
     Route: 065
  19. ETOPOSIDE. [Suspect]
     Active Substance: ETOPOSIDE
     Dosage: RESUMED FULL DOSE
     Route: 065

REACTIONS (1)
  - Staphylococcal bacteraemia [Recovered/Resolved]
